FAERS Safety Report 16551794 (Version 3)
Quarter: 2019Q3

REPORT INFORMATION
  Report Type: Spontaneous
  Country: BR (occurrence: BR)
  Receive Date: 20190710
  Receipt Date: 20190828
  Transmission Date: 20191004
  Serious: Yes (Hospitalization, Disabling, Other)
  Sender: FDA-Public Use
  Company Number: BR-BRISTOL-MYERS SQUIBB COMPANY-BMS-2019-066327

PATIENT
  Sex: Female

DRUGS (4)
  1. GABAPENTIN. [Suspect]
     Active Substance: GABAPENTIN
     Indication: PRODUCT USED FOR UNKNOWN INDICATION
     Dosage: 400 MILLIGRAM
     Route: 065
  2. GLUCOVANCE [Suspect]
     Active Substance: GLYBURIDE\METFORMIN HYDROCHLORIDE
     Indication: DIABETES MELLITUS
     Dosage: 1 DOSAGE FORM, BID
     Route: 048
  3. GABAPENTIN. [Suspect]
     Active Substance: GABAPENTIN
     Indication: BALANCE DISORDER
     Dosage: 300 MILLIGRAM
     Route: 065
  4. INSULIN [Concomitant]
     Active Substance: INSULIN NOS
     Indication: DIABETES MELLITUS
     Dosage: INSULIN BEFORE DINNER
     Route: 065

REACTIONS (16)
  - Syncope [Unknown]
  - Fall [Unknown]
  - Product physical issue [Unknown]
  - Blood glucose decreased [Unknown]
  - Intentional product misuse [Unknown]
  - Malaise [Unknown]
  - Breast cancer [Unknown]
  - Gait inability [Unknown]
  - Asthenia [Unknown]
  - Hyperhidrosis [Unknown]
  - Dysstasia [None]
  - Hypoaesthesia [Unknown]
  - Injury [Unknown]
  - Balance disorder [Unknown]
  - Vision blurred [Unknown]
  - Confusional state [Unknown]

NARRATIVE: CASE EVENT DATE: 2017
